FAERS Safety Report 16033245 (Version 2)
Quarter: 2022Q4

REPORT INFORMATION
  Report Type: Spontaneous
  Country: CA (occurrence: CA)
  Receive Date: 20190305
  Receipt Date: 20221019
  Transmission Date: 20230112
  Serious: Yes (Other)
  Sender: FDA-Public Use
  Company Number: CA-JNJFOC-20190242040

PATIENT
  Age: 18 Year
  Sex: Female

DRUGS (1)
  1. TYLENOL [Suspect]
     Active Substance: ACETAMINOPHEN
     Indication: Suspected suicide
     Dosage: 30 DOSAGE FORMS
     Route: 065
     Dates: start: 20040625

REACTIONS (2)
  - Nausea [Unknown]
  - Intentional overdose [Unknown]

NARRATIVE: CASE EVENT DATE: 20040626
